FAERS Safety Report 7419831-9 (Version None)
Quarter: 2011Q2

REPORT INFORMATION
  Report Type: 
  Country: None (occurrence: None)
  Receive Date: 20110418
  Receipt Date: 20110405
  Transmission Date: 20111010
  Serious: Yes (Disabling, Other)
  Sender: FDA-Public Use
  Company Number: JP-JNJFOC-20110305587

PATIENT
  Sex: Male

DRUGS (8)
  1. CRAVIT [Suspect]
     Indication: BRONCHITIS
     Route: 048
  2. CALONAL [Concomitant]
     Indication: PYREXIA
     Route: 048
  3. TELMISARTAN [Concomitant]
     Indication: HYPERTENSION
     Route: 048
  4. ASTOMIN [Concomitant]
     Indication: BRONCHITIS
     Route: 048
  5. CLARITHROMYCIN [Concomitant]
     Indication: BRONCHITIS
     Route: 065
  6. KIPRES [Concomitant]
     Indication: BRONCHITIS
     Route: 048
  7. NORVASC [Concomitant]
     Indication: HYPERTENSION
     Route: 048
  8. MUCODYNE [Concomitant]
     Indication: BRONCHITIS
     Route: 048

REACTIONS (6)
  - DRUG ERUPTION [None]
  - STEVENS-JOHNSON SYNDROME [None]
  - HYPOTENSION [None]
  - RENAL IMPAIRMENT [None]
  - HYPOXIA [None]
  - HEPATIC FUNCTION ABNORMAL [None]
